FAERS Safety Report 19969104 (Version 1)
Quarter: 2021Q4

REPORT INFORMATION
  Report Type: Spontaneous
  Country: US (occurrence: US)
  Receive Date: 20211019
  Receipt Date: 20211019
  Transmission Date: 20220304
  Serious: No
  Sender: FDA-Public Use
  Company Number: US-GLENMARK PHARMACEUTICALS-2020GMK050706

PATIENT

DRUGS (2)
  1. LIDOCAINE [Suspect]
     Active Substance: LIDOCAINE
     Indication: Herpes zoster
     Dosage: UNK, SINGLE (SHE USED THE PRODUCT ONCE LAST 2 WEEKS AGO, UNSPECIFIED)
     Route: 061
     Dates: start: 202011, end: 202011
  2. LIDOCAINE [Suspect]
     Active Substance: LIDOCAINE
     Dosage: UNK, PRN (SHE WAS USING IT OCCASIONALLY TWICE A DAY AS NEEDED FOR PAIN)
     Route: 061
     Dates: start: 2020

REACTIONS (7)
  - Product use in unapproved indication [Unknown]
  - Wrong technique in product usage process [Unknown]
  - Product storage error [Unknown]
  - Product expiration date issue [Unknown]
  - Product lot number issue [Unknown]
  - Product packaging difficult to open [Unknown]
  - Product container issue [Unknown]

NARRATIVE: CASE EVENT DATE: 20201101
